FAERS Safety Report 23950210 (Version 2)
Quarter: 2024Q4

REPORT INFORMATION
  Report Type: Spontaneous
  Country: JP (occurrence: JP)
  Receive Date: 20240607
  Receipt Date: 20241018
  Transmission Date: 20250115
  Serious: Yes (Other)
  Sender: GENMAB
  Company Number: JP-GENMAB-2024-01924

PATIENT
  Age: 82 Year
  Sex: Male

DRUGS (5)
  1. EPKINLY [Suspect]
     Active Substance: EPCORITAMAB-BYSP
     Indication: High-grade B-cell lymphoma
     Dosage: 0.16 MILLIGRAM, SINGLE, THE FIRST ADMINISTRATION
     Route: 065
     Dates: start: 20240327, end: 202403
  2. EPKINLY [Suspect]
     Active Substance: EPCORITAMAB-BYSP
     Dosage: 0.8 MILLIGRAM, THE SECOND ADMINISTRATION
     Route: 065
     Dates: start: 2024, end: 2024
  3. EPKINLY [Suspect]
     Active Substance: EPCORITAMAB-BYSP
     Dosage: 0.8 MILLIGRAM, THE THIRD ADMINISTRATION
     Route: 065
     Dates: start: 2024, end: 2024
  4. PREDNISOLONE [Concomitant]
     Active Substance: PREDNISOLONE
     Indication: Premedication
     Dosage: UNK
     Dates: start: 2024, end: 2024
  5. DECADRON [Concomitant]
     Active Substance: DEXAMETHASONE
     Indication: Prophylaxis
     Dosage: UNK
     Dates: start: 2024, end: 2024

REACTIONS (6)
  - Bronchopulmonary aspergillosis [Unknown]
  - COVID-19 pneumonia [Unknown]
  - Cytokine release syndrome [Recovering/Resolving]
  - General physical health deterioration [Unknown]
  - Cytomegalovirus test positive [Unknown]
  - Inappropriate schedule of product administration [Unknown]

NARRATIVE: CASE EVENT DATE: 20240101
